FAERS Safety Report 9918777 (Version 1)
Quarter: 2014Q1

REPORT INFORMATION
  Report Type: Spontaneous
  Country: CA (occurrence: CA)
  Receive Date: 20140224
  Receipt Date: 20140224
  Transmission Date: 20141002
  Serious: Yes (Other)
  Sender: FDA-Public Use
  Company Number: CA-HORIZON-VIM-0018-2014

PATIENT
  Age: 53 Year
  Sex: Female

DRUGS (2)
  1. VIMOVO [Suspect]
     Route: 048
  2. NOVO-LEXIN [Suspect]
     Route: 048

REACTIONS (10)
  - Chills [Recovering/Resolving]
  - Decreased appetite [Recovering/Resolving]
  - Mobility decreased [Recovering/Resolving]
  - Nasal congestion [Recovering/Resolving]
  - Tongue discolouration [Recovering/Resolving]
  - Weight decreased [Recovering/Resolving]
  - Ageusia [Recovering/Resolving]
  - Headache [Recovering/Resolving]
  - Pyrexia [Recovering/Resolving]
  - Tremor [Recovering/Resolving]
